FAERS Safety Report 8434635-6 (Version None)
Quarter: 2012Q2

REPORT INFORMATION
  Report Type: 
  Country: None (occurrence: None)
  Receive Date: 20120614
  Receipt Date: 20120602
  Transmission Date: 20120825
  Serious: Yes (Death, Hospitalization)
  Sender: FDA-Public Use
  Company Number: US-PAR PHARMACEUTICAL, INC-2012SCPR004443

PATIENT

DRUGS (3)
  1. VERAPAMIL [Suspect]
     Indication: PRODUCT USED FOR UNKNOWN INDICATION
     Dosage: UNK, UNKNOWN
     Route: 065
  2. AMITRIPTYLINE HCL [Suspect]
     Indication: PRODUCT USED FOR UNKNOWN INDICATION
     Dosage: UNK, UNKNOWN
     Route: 065
  3. LIPID EMULSION [Suspect]
     Indication: SHOCK
     Dosage: BOLUS (X 2) + INFUSION
     Route: 042

REACTIONS (11)
  - CARDIOTOXICITY [None]
  - INTESTINAL INFARCTION [None]
  - METABOLIC ACIDOSIS [None]
  - HYPERTHERMIA [None]
  - DEEP VEIN THROMBOSIS [None]
  - MULTIPLE DRUG OVERDOSE [None]
  - DISSEMINATED INTRAVASCULAR COAGULATION [None]
  - DEATH [None]
  - TOXICITY TO VARIOUS AGENTS [None]
  - SHOCK [None]
  - HYPERLIPIDAEMIA [None]
